FAERS Safety Report 17333756 (Version 1)
Quarter: 2020Q1

REPORT INFORMATION
  Report Type: Spontaneous
  Country: JP (occurrence: JP)
  Receive Date: 20200128
  Receipt Date: 20200128
  Transmission Date: 20200409
  Serious: Yes (Hospitalization, Other)
  Sender: FDA-Public Use
  Company Number: JP-ACCORD-170560

PATIENT
  Age: 32 Year
  Sex: Female

DRUGS (3)
  1. OLMESARTAN/OLMESARTAN MEDOXOMIL [Suspect]
     Active Substance: OLMESARTAN MEDOXOMIL
     Dosage: 800 MG
  2. AZELNIDIPINE [Suspect]
     Active Substance: AZELNIDIPINE
     Dosage: 640 MG
  3. IPRAGLIFLOZIN [Suspect]
     Active Substance: IPRAGLIFLOZIN
     Dosage: 1500 MG

REACTIONS (3)
  - Hypotension [Recovered/Resolved]
  - Somnolence [Unknown]
  - Suicide attempt [Unknown]
